FAERS Safety Report 24408549 (Version 3)
Quarter: 2024Q4

REPORT INFORMATION
  Report Type: Spontaneous
  Country: CO (occurrence: CO)
  Receive Date: 20241007
  Receipt Date: 20241029
  Transmission Date: 20250114
  Serious: Yes (Death)
  Sender: VERTEX
  Company Number: CO-VERTEX PHARMACEUTICALS-2024-015427

PATIENT
  Sex: Male

DRUGS (1)
  1. TRIKAFTA [Suspect]
     Active Substance: ELEXACAFTOR\IVACAFTOR\TEZACAFTOR
     Indication: Cystic fibrosis
     Dosage: UNKNOWN
     Route: 048
     Dates: start: 20240115

REACTIONS (1)
  - Post procedural infection [Fatal]

NARRATIVE: CASE EVENT DATE: 20240101
